FAERS Safety Report 4265472-4 (Version None)
Quarter: 2004Q1

REPORT INFORMATION
  Report Type: 
  Country: None (occurrence: None)
  Receive Date: 20040106
  Receipt Date: 20031222
  Transmission Date: 20041129
  Serious: Yes (Hospitalization, Other)
  Sender: FDA-Public Use
  Company Number: 200320659US

PATIENT
  Age: 53 Year
  Sex: Male

DRUGS (16)
  1. LASIX [Suspect]
  2. PROCRIT [Suspect]
     Indication: ANAEMIA POSTOPERATIVE
     Dosage: 4000 U QD SC
     Route: 058
     Dates: start: 20020801
  3. ANTIBIOTIC [Suspect]
  4. ASPIRIN [Concomitant]
  5. AMIODARONE HCL [Concomitant]
  6. DIGOXIN (DIGITEK) [Concomitant]
  7. COREG [Concomitant]
  8. LISINOPRIL [Concomitant]
  9. TORSEMIDE [Concomitant]
  10. HYDRALAZINE HCL [Concomitant]
  11. ISOSORBIDE DINITRATE (ISORDIL) [Concomitant]
  12. FOLIC ACID [Concomitant]
  13. UBIDECARENONE (COENZYME Q10) [Concomitant]
  14. IRON [Concomitant]
  15. THIAMINE HYDROCHLORIDE, RIBOFLAVIN, NICOTINAMIDE, PYRIDOXINE HYDROCHLO [Concomitant]
  16. PRAVASTATIN SODIUM  (PRAVACHOL) [Concomitant]

REACTIONS (6)
  - BLOOD PRESSURE DECREASED [None]
  - CARDIAC FAILURE CONGESTIVE [None]
  - DRUG HYPERSENSITIVITY [None]
  - HAEMOGLOBIN DECREASED [None]
  - MECHANICAL COMPLICATION OF IMPLANT [None]
  - PAIN [None]
